FAERS Safety Report 4942256-2 (Version None)
Quarter: 2006Q1

REPORT INFORMATION
  Report Type: 
  Country: None (occurrence: None)
  Receive Date: 20060313
  Receipt Date: 20051007
  Transmission Date: 20060701
  Serious: No
  Sender: FDA-Public Use
  Company Number: US-GLAXOSMITHKLINE-A0577507A

PATIENT
  Age: 76 Year
  Sex: Female

DRUGS (3)
  1. NICORETTE [Suspect]
  2. NICORETTE (MINT) [Suspect]
  3. WELLBUTRIN [Suspect]
     Route: 065

REACTIONS (4)
  - FATIGUE [None]
  - INTENTIONAL DRUG MISUSE [None]
  - TENSION [None]
  - WEIGHT INCREASED [None]
